FAERS Safety Report 7991794-7 (Version None)
Quarter: 2011Q4

REPORT INFORMATION
  Report Type: 
  Country: None (occurrence: None)
  Receive Date: 20111219
  Receipt Date: 20111214
  Transmission Date: 20120403
  Serious: Yes (Life-Threatening, Hospitalization)
  Sender: FDA-Public Use
  Company Number: DE-B.I. PHARMACEUTICALS,INC./RIDGEFIELD-2011-DE-06826DE

PATIENT
  Sex: Female

DRUGS (7)
  1. TORSEMIDE [Concomitant]
     Indication: HYPONATRAEMIA
     Dosage: 2 ANZ
  2. ATACAND [Concomitant]
     Dosage: 2 ANZ
  3. HYDROCHLOROTHIAZID [Concomitant]
     Indication: HYPONATRAEMIA
  4. PRADAXA [Suspect]
     Indication: TACHYARRHYTHMIA
     Dosage: 1 ANZ
     Dates: end: 20111212
  5. PRADAXA [Suspect]
     Indication: ATRIAL FIBRILLATION
  6. GARBAPENTIN [Concomitant]
  7. BISOPROLO [Concomitant]
     Dosage: 4 ANZ

REACTIONS (9)
  - APHASIA [None]
  - SUBDURAL HAEMATOMA [None]
  - HEADACHE [None]
  - FALL [None]
  - CONTUSION [None]
  - DEPRESSED LEVEL OF CONSCIOUSNESS [None]
  - APRAXIA [None]
  - HEMIPLEGIA [None]
  - DIZZINESS [None]
